FAERS Safety Report 4328126-1 (Version None)
Quarter: 2004Q1

REPORT INFORMATION
  Report Type: 
  Country: None (occurrence: None)
  Receive Date: 20040325
  Receipt Date: 20040311
  Transmission Date: 20041129
  Serious: Yes (Death)
  Sender: FDA-Public Use
  Company Number: 200410154BFR

PATIENT
  Age: 81 Year
  Sex: Male
  Weight: 85 kg

DRUGS (10)
  1. CIPROFLOXACIN [Suspect]
     Indication: LUNG DISORDER
     Dosage: SEE IMAGE
     Dates: start: 20040201, end: 20040220
  2. CIPROFLOXACIN [Suspect]
     Indication: LUNG DISORDER
     Dosage: SEE IMAGE
     Dates: start: 20040101
  3. . [Concomitant]
  4. CELEBREX [Suspect]
     Dosage: 1 DF, TOTAL DAILY
     Dates: start: 20030615, end: 20040128
  5. AUGMENTIN [Suspect]
     Indication: LUNG DISORDER
     Dosage: ORAL
     Route: 048
  6. LASIX [Suspect]
     Dosage: 80 MG, TOTAL DAILY, ORAL
     Route: 048
     Dates: start: 20030615
  7. RAMIPRIL [Suspect]
     Dosage: 5 MG, TOTAL DAILY, ORAL
     Route: 048
     Dates: start: 20030615, end: 20040201
  8. NOZINAN [Concomitant]
  9. ROCEPHIN [Concomitant]
  10. SOLUPRED [Concomitant]

REACTIONS (11)
  - CARDIAC FAILURE [None]
  - DIALYSIS [None]
  - HYPERKALAEMIA [None]
  - HYPONATRAEMIA [None]
  - HYPOTENSION [None]
  - LUNG INFECTION [None]
  - NEPHRITIS INTERSTITIAL [None]
  - RENAL FAILURE ACUTE [None]
  - RESPIRATORY FAILURE [None]
  - SOMNOLENCE [None]
  - WEIGHT DECREASED [None]
